FAERS Safety Report 21296508 (Version 9)
Quarter: 2024Q4

REPORT INFORMATION
  Report Type: Report from Study
  Country: JP (occurrence: JP)
  Receive Date: 20220906
  Receipt Date: 20241121
  Transmission Date: 20250115
  Serious: Yes (Other)
  Sender: ROCHE
  Company Number: JP-CHUGAI-2022033812

PATIENT
  Age: 59 Year
  Sex: Female

DRUGS (45)
  1. SATRALIZUMAB [Suspect]
     Active Substance: SATRALIZUMAB
     Indication: Neuromyelitis optica spectrum disorder
     Dosage: UNK
     Route: 058
     Dates: start: 20210614, end: 20210714
  2. SATRALIZUMAB [Suspect]
     Active Substance: SATRALIZUMAB
     Route: 058
     Dates: start: 20210811, end: 20220803
  3. SATRALIZUMAB [Suspect]
     Active Substance: SATRALIZUMAB
     Route: 058
     Dates: start: 20220914
  4. SATRALIZUMAB [Suspect]
     Active Substance: SATRALIZUMAB
     Route: 058
     Dates: start: 20220105, end: 20231213
  5. SATRALIZUMAB [Suspect]
     Active Substance: SATRALIZUMAB
     Route: 058
  6. SATRALIZUMAB [Suspect]
     Active Substance: SATRALIZUMAB
     Route: 058
  7. PREDNISOLONE [Suspect]
     Active Substance: PREDNISOLONE
     Indication: Neuromyelitis optica spectrum disorder
     Dosage: 8 MILLIGRAM
     Route: 050
  8. PREDNISOLONE [Suspect]
     Active Substance: PREDNISOLONE
     Route: 048
     Dates: start: 20210614, end: 20210713
  9. PREDNISOLONE [Suspect]
     Active Substance: PREDNISOLONE
     Route: 048
     Dates: start: 20210714, end: 20210810
  10. PREDNISOLONE [Suspect]
     Active Substance: PREDNISOLONE
     Route: 048
     Dates: start: 20210811, end: 20210907
  11. PREDNISOLONE [Suspect]
     Active Substance: PREDNISOLONE
     Route: 048
     Dates: start: 20210908, end: 20211005
  12. PREDNISOLONE [Suspect]
     Active Substance: PREDNISOLONE
     Route: 048
     Dates: start: 20211006, end: 20211109
  13. PREDNISOLONE [Suspect]
     Active Substance: PREDNISOLONE
     Route: 048
     Dates: start: 20211110, end: 20211207
  14. PREDNISOLONE [Suspect]
     Active Substance: PREDNISOLONE
     Route: 048
     Dates: end: 20211208
  15. PREDNISOLONE [Suspect]
     Active Substance: PREDNISOLONE
     Dosage: 8 MILLIGRAM
     Route: 050
  16. PREDNISOLONE [Suspect]
     Active Substance: PREDNISOLONE
     Dosage: 8 MILLIGRAM
     Route: 050
  17. PREDNISOLONE [Suspect]
     Active Substance: PREDNISOLONE
     Dosage: 8 MILLIGRAM
     Route: 050
  18. PREDNISOLONE [Suspect]
     Active Substance: PREDNISOLONE
     Dosage: 8 MILLIGRAM
     Route: 050
  19. PREDNISOLONE [Suspect]
     Active Substance: PREDNISOLONE
     Dosage: 8 MILLIGRAM
     Route: 050
  20. PREDNISOLONE [Suspect]
     Active Substance: PREDNISOLONE
     Dosage: 8 MILLIGRAM
     Route: 050
  21. PREDNISOLONE [Suspect]
     Active Substance: PREDNISOLONE
     Dosage: 8 MILLIGRAM
     Route: 050
  22. PREDNISOLONE [Suspect]
     Active Substance: PREDNISOLONE
     Dosage: 8 MILLIGRAM
     Route: 050
  23. PREDNISOLONE [Suspect]
     Active Substance: PREDNISOLONE
     Dosage: 8 MILLIGRAM
     Route: 050
     Dates: start: 20221207, end: 20230103
  24. PREDNISOLONE [Suspect]
     Active Substance: PREDNISOLONE
     Dosage: 8 MILLIGRAM
     Route: 050
     Dates: start: 20230104, end: 20230131
  25. PREDNISOLONE [Suspect]
     Active Substance: PREDNISOLONE
     Dosage: 8 MILLIGRAM
     Route: 050
     Dates: start: 20230201, end: 20230228
  26. PREDNISOLONE [Suspect]
     Active Substance: PREDNISOLONE
     Dosage: 8 MILLIGRAM
     Route: 050
     Dates: start: 20230301, end: 20230425
  27. PREDNISOLONE [Suspect]
     Active Substance: PREDNISOLONE
     Dosage: 8 MILLIGRAM
     Route: 050
     Dates: start: 20230426, end: 20230523
  28. PREDNISOLONE [Suspect]
     Active Substance: PREDNISOLONE
     Dosage: 8 MILLIGRAM
     Route: 050
     Dates: start: 20230524, end: 20230620
  29. PREDNISOLONE [Suspect]
     Active Substance: PREDNISOLONE
     Dosage: 8 MILLIGRAM
     Route: 050
     Dates: start: 20230621, end: 20230815
  30. PREDNISOLONE [Suspect]
     Active Substance: PREDNISOLONE
     Dosage: 8 MILLIGRAM
     Route: 050
     Dates: start: 20230816, end: 20230919
  31. PREDNISOLONE [Suspect]
     Active Substance: PREDNISOLONE
     Dosage: 8 MILLIGRAM
     Route: 050
     Dates: start: 20230920, end: 20231017
  32. PREDNISOLONE [Suspect]
     Active Substance: PREDNISOLONE
     Dosage: 8 MILLIGRAM
     Route: 050
     Dates: start: 20231018, end: 20231114
  33. PREDNISOLONE [Suspect]
     Active Substance: PREDNISOLONE
     Dosage: 8 MILLIGRAM
     Route: 050
  34. PREDNISOLONE [Suspect]
     Active Substance: PREDNISOLONE
     Dosage: 8 MILLIGRAM
     Route: 050
  35. AZATHIOPRINE [Concomitant]
     Active Substance: AZATHIOPRINE
     Indication: Neuromyelitis optica spectrum disorder
     Dosage: 50MG/DAY
     Route: 065
  36. AZATHIOPRINE [Concomitant]
     Active Substance: AZATHIOPRINE
     Route: 065
  37. PREGABALIN [Concomitant]
     Active Substance: PREGABALIN
     Indication: Pain
     Dosage: 100MG/DAY
     Route: 065
  38. PREGABALIN [Concomitant]
     Active Substance: PREGABALIN
     Dosage: 100MG/DAY
     Route: 065
  39. CARBAMAZEPINE [Concomitant]
     Active Substance: CARBAMAZEPINE
     Indication: Pain
     Dosage: 300MG/DAY
     Route: 065
  40. CARBAMAZEPINE [Concomitant]
     Active Substance: CARBAMAZEPINE
     Dosage: 300MG/DAY
     Route: 065
  41. COVID-19 VACCINE MRNA [Concomitant]
     Indication: COVID-19 prophylaxis
     Dosage: UNK
     Route: 065
  42. COVID-19 VACCINE MRNA [Concomitant]
     Dosage: UNK
     Route: 065
  43. COVID-19 VACCINE MRNA [Concomitant]
     Dosage: UNK
  44. COVID-19 VACCINE MRNA [Concomitant]
     Dosage: UNK
  45. BETAMETHASONE [Concomitant]
     Active Substance: BETAMETHASONE
     Dosage: 1.5MG/DAY
     Route: 050
     Dates: start: 20231115

REACTIONS (12)
  - Toxic skin eruption [Recovered/Resolved]
  - Conjunctival hyperaemia [Recovered/Resolved]
  - Fibrin D dimer increased [Recovering/Resolving]
  - Escherichia test positive [Unknown]
  - Enterococcus test positive [Unknown]
  - Gardnerella test positive [Unknown]
  - White blood cell count decreased [Recovered/Resolved]
  - Hepatic function abnormal [Not Recovered/Not Resolved]
  - Lymphocyte count decreased [Unknown]
  - Blood triglycerides increased [Recovering/Resolving]
  - Oedema [Recovered/Resolved]
  - White blood cell count decreased [Recovered/Resolved]

NARRATIVE: CASE EVENT DATE: 20220202
